FAERS Safety Report 4976522-1 (Version None)
Quarter: 2006Q2

REPORT INFORMATION
  Report Type: 
  Country: None (occurrence: None)
  Receive Date: 20060418
  Receipt Date: 20060418
  Transmission Date: 20061013
  Serious: Yes (Other)
  Sender: FDA-Public Use
  Company Number: None

PATIENT
  Sex: Male
  Weight: 24.9478 kg

DRUGS (7)
  1. CONCERTA [Suspect]
     Indication: ATTENTION DEFICIT/HYPERACTIVITY DISORDER
     Dosage: 2 TABLETS EVERY MORNING PO
     Route: 048
     Dates: start: 20051217, end: 20060412
  2. ADDERALL 10 [Concomitant]
  3. ADDERALL XR 10 [Concomitant]
  4. RISPERDAL [Concomitant]
  5. STRATTERA [Concomitant]
  6. REMERON [Concomitant]
  7. SEROQUEL [Concomitant]

REACTIONS (6)
  - ANXIETY [None]
  - HALLUCINATION, AUDITORY [None]
  - HALLUCINATION, VISUAL [None]
  - INSOMNIA [None]
  - PARANOIA [None]
  - PSYCHOTIC DISORDER [None]
